FAERS Safety Report 8251182-5 (Version None)
Quarter: 2012Q2

REPORT INFORMATION
  Report Type: 
  Country: None (occurrence: None)
  Receive Date: 20120402
  Receipt Date: 20120323
  Transmission Date: 20120825
  Serious: Yes (Hospitalization, Other)
  Sender: FDA-Public Use
  Company Number: US-MERCK-1109USA01766

PATIENT
  Age: 59 Year
  Sex: Female

DRUGS (12)
  1. ACTONEL [Suspect]
     Route: 048
     Dates: start: 20020701, end: 20030101
  2. CALCIUM (UNSPECIFIED) [Concomitant]
     Indication: OSTEOPENIA
     Route: 065
     Dates: start: 20000101
  3. HORMONES (UNSPECIFIED) [Concomitant]
     Route: 065
     Dates: start: 20000601, end: 20020701
  4. FOSAMAX [Suspect]
     Route: 048
  5. ACTONEL [Suspect]
     Route: 048
     Dates: start: 20070601, end: 20071001
  6. OMEGA-3 MARINE TRIGLYCERIDES [Concomitant]
     Route: 065
     Dates: start: 20000101
  7. VITAMIN D (UNSPECIFIED) [Concomitant]
     Indication: OSTEOPENIA
     Route: 065
     Dates: start: 20000101
  8. FOSAMAX [Suspect]
     Route: 048
     Dates: start: 20010601, end: 20020401
  9. FOSAMAX [Suspect]
     Route: 048
     Dates: start: 20030101, end: 20060801
  10. FOSAMAX [Suspect]
     Indication: OSTEOPENIA
     Route: 048
     Dates: start: 20000701, end: 20010501
  11. VITAMINS (UNSPECIFIED) [Concomitant]
     Route: 065
     Dates: start: 20000101
  12. ACTONEL [Suspect]
     Indication: OSTEOPENIA
     Route: 048
     Dates: start: 20020501, end: 20020701

REACTIONS (11)
  - GASTROOESOPHAGEAL REFLUX DISEASE [None]
  - ROSACEA [None]
  - CATARACT [None]
  - HAEMATOMA [None]
  - FEMUR FRACTURE [None]
  - PULMONARY EMBOLISM [None]
  - DEEP VEIN THROMBOSIS [None]
  - FALL [None]
  - CARDIAC DISORDER [None]
  - SUPRAVENTRICULAR TACHYCARDIA [None]
  - HYPERTENSION [None]
